FAERS Safety Report 7368756 (Version 7)
Quarter: 2014Q2

REPORT INFORMATION
  Report Type: Spontaneous
  Country: JP (occurrence: JP)
  Receive Date: 20100428
  Receipt Date: 20140513
  Transmission Date: 20141212
  Serious: Yes (Death, Hospitalization, Other)
  Sender: FDA-Public Use
  Company Number: JP-BAYER-201011942BYL

PATIENT
  Age: 74 Year
  Sex: Male
  Weight: 62 kg

DRUGS (9)
  1. NEXAVAR [Suspect]
     Indication: HEPATOCELLULAR CARCINOMA
     Dosage: 800 MG (DAILY DOSE)
     Route: 048
     Dates: start: 20100405, end: 20100420
  2. NEXAVAR [Suspect]
     Indication: HEPATOCELLULAR CARCINOMA
     Dosage: 400 MG (DAILY DOSE)
     Route: 048
     Dates: start: 20100421, end: 2010
  3. URSO [Concomitant]
     Dosage: 600 MG (DAILY DOSE), , ORAL
     Route: 048
     Dates: start: 20040729
  4. GASTER D [Concomitant]
     Dosage: 40 MG (DAILY DOSE), , ORAL
     Route: 048
     Dates: start: 20070522
  5. NAUZELIN [Concomitant]
     Dosage: 20 MG (DAILY DOSE), , ORAL
     Route: 048
     Dates: start: 20070522, end: 20100506
  6. FLIVAS [Concomitant]
     Dosage: 50 MG (DAILY DOSE), , ORAL
     Route: 048
     Dates: start: 20090324
  7. DEPAS [Concomitant]
     Dosage: 0.5 MG (DAILY DOSE), , ORAL
     Route: 048
     Dates: start: 20090714
  8. HALCION [Concomitant]
     Dosage: 0.125 MG (DAILY DOSE), , ORAL
     Route: 048
     Dates: start: 20090728
  9. KANAMYCIN [Concomitant]
     Route: 048

REACTIONS (5)
  - Hepatic encephalopathy [Recovering/Resolving]
  - Hepatic failure [Fatal]
  - Gastric antral vascular ectasia [None]
  - Upper gastrointestinal haemorrhage [None]
  - Pyrexia [Not Recovered/Not Resolved]
